FAERS Safety Report 19868372 (Version 3)
Quarter: 2021Q4

REPORT INFORMATION
  Report Type: Report from Study
  Country: ES (occurrence: ES)
  Receive Date: 20210921
  Receipt Date: 20211111
  Transmission Date: 20220303
  Serious: Yes (Hospitalization)
  Sender: FDA-Public Use
  Company Number: ES-SERVIER-S21010147

PATIENT

DRUGS (31)
  1. AZACITIDINE [Suspect]
     Active Substance: AZACITIDINE
     Indication: Acute myeloid leukaemia
     Dosage: 150 MG, DAILY
     Route: 058
     Dates: start: 20181015, end: 20181206
  2. AZACITIDINE [Suspect]
     Active Substance: AZACITIDINE
     Dosage: 143.25 MG, DAILY
     Route: 058
     Dates: start: 20181231, end: 20190108
  3. AZACITIDINE [Suspect]
     Active Substance: AZACITIDINE
     Dosage: 144 MG, DAILY
     Route: 058
     Dates: start: 20190204, end: 20190212
  4. AZACITIDINE [Suspect]
     Active Substance: AZACITIDINE
     Dosage: 145.5 MG, DAILY
     Route: 058
     Dates: start: 20190304, end: 20190312
  5. AZACITIDINE [Suspect]
     Active Substance: AZACITIDINE
     Dosage: 146.26 MG, DAILY
     Route: 058
     Dates: start: 20190408, end: 20190412
  6. AZACITIDINE [Suspect]
     Active Substance: AZACITIDINE
     Dosage: 146.25 MG, DAILY
     Route: 058
     Dates: start: 20190415, end: 20190416
  7. AZACITIDINE [Suspect]
     Active Substance: AZACITIDINE
     Dosage: 146.25 MG, DAILY
     Route: 058
     Dates: start: 20190415, end: 20190416
  8. AZACITIDINE [Suspect]
     Active Substance: AZACITIDINE
     Dosage: 145.5 MG, DAILY
     Route: 058
     Dates: start: 20190506, end: 20190806
  9. AZACITIDINE [Suspect]
     Active Substance: AZACITIDINE
     Dosage: 149.2 MG, DAILY
     Route: 058
     Dates: start: 20190916, end: 20191022
  10. AZACITIDINE [Suspect]
     Active Substance: AZACITIDINE
     Dosage: 150 MG, DAILY
     Route: 058
     Dates: start: 20191125, end: 20191231
  11. AZACITIDINE [Suspect]
     Active Substance: AZACITIDINE
     Dosage: 147 MG, DAILY
     Route: 058
     Dates: start: 20200210, end: 20200520
  12. AZACITIDINE [Suspect]
     Active Substance: AZACITIDINE
     Dosage: 149.2 MG, DAILY
     Route: 058
     Dates: start: 20200608, end: 20200825
  13. AZACITIDINE [Suspect]
     Active Substance: AZACITIDINE
     Dosage: 150.8 MG, DAILY
     Route: 058
     Dates: start: 20201019, end: 20201027
  14. AZACITIDINE [Suspect]
     Active Substance: AZACITIDINE
     Dosage: 151.6 MG, DAILY
     Route: 058
     Dates: start: 20201116, end: 20210221
  15. AZACITIDINE [Suspect]
     Active Substance: AZACITIDINE
     Dosage: 150 MG, DAILY
     Route: 058
     Dates: start: 20210215, end: 20210216
  16. AZACITIDINE [Suspect]
     Active Substance: AZACITIDINE
     Dosage: 151.6 MG, DAILY
     Route: 058
     Dates: start: 20210322, end: 20210330
  17. AZACITIDINE [Suspect]
     Active Substance: AZACITIDINE
     Dosage: 150.8 MG, DAILY
     Route: 058
     Dates: start: 20210419, end: 20210817
  18. AZACITIDINE [Suspect]
     Active Substance: AZACITIDINE
     Dosage: 149.2, DAILY
     Route: 058
     Dates: start: 20210927, end: 20211005
  19. AZACITIDINE [Suspect]
     Active Substance: AZACITIDINE
     Dosage: 149.2 MG, DAILY
     Route: 058
     Dates: start: 20211025
  20. TN UNSPECIFIED [Concomitant]
     Indication: Gastritis prophylaxis
     Dosage: 20 MG, QD
     Route: 048
     Dates: start: 2018
  21. TN UNSPECIFIED [Concomitant]
     Indication: Type 2 diabetes mellitus
     Dosage: 850 MG, QD
     Route: 048
     Dates: start: 20181004
  22. TN UNSPECIFIED [Concomitant]
     Indication: Prophylaxis
     Dosage: 2 MG, QD
     Route: 048
     Dates: start: 20181028
  23. TN UNSPECIFIED [Concomitant]
     Indication: Prophylaxis
     Dosage: 300 MG, QD
     Route: 048
     Dates: start: 20181112
  24. TN UNSPECIFIED [Concomitant]
     Indication: Type 2 diabetes mellitus
     Dosage: VARIABLE DOSES
     Route: 058
     Dates: start: 20181125
  25. TN UNSPECIFIED [Concomitant]
     Indication: Prophylaxis
     Dosage: 10 MG, PRN
     Route: 048
     Dates: start: 20181202
  26. TN UNSPECIFIED [Concomitant]
     Indication: Type 2 diabetes mellitus
     Dosage: 580 MG, QD
     Route: 048
     Dates: start: 20181212
  27. TN UNSPECIFIED [Concomitant]
     Indication: Insomnia
     Dosage: 1 MG, QD
     Route: 048
     Dates: start: 20200707
  28. TN UNSPECIFIED [Concomitant]
     Indication: Diuretic therapy
     Dosage: 300 MG, QD
     Route: 048
     Dates: start: 20200713
  29. TN UNSPECIFIED [Concomitant]
     Indication: Osteoporosis prophylaxis
     Dosage: 500 MG, QD
     Route: 048
     Dates: start: 20200713
  30. Magnogene [Concomitant]
     Indication: Prophylaxis
     Dosage: 1 DF, BID
     Route: 048
     Dates: start: 20201015
  31. TN UNSPECIFIED [Concomitant]
     Indication: Depressive symptom
     Dosage: 20 MG, QD
     Route: 048
     Dates: start: 20210428

REACTIONS (1)
  - Febrile neutropenia [Recovered/Resolved]

NARRATIVE: CASE EVENT DATE: 20210909
